FAERS Safety Report 5593877-8 (Version None)
Quarter: 2008Q1

REPORT INFORMATION
  Report Type: 
  Country: None (occurrence: None)
  Receive Date: 20080116
  Receipt Date: 20080115
  Transmission Date: 20080703
  Serious: Yes (Other)
  Sender: FDA-Public Use
  Company Number: US-BAYER-200713215BCC

PATIENT
  Age: 24 Year
  Sex: Female
  Weight: 73 kg

DRUGS (2)
  1. ALEVE [Suspect]
     Indication: BACK PAIN
     Dosage: AS USED: 220/440 MG  UNIT DOSE: 220 MG
     Route: 048
     Dates: start: 20071001, end: 20071001
  2. YASMIN [Concomitant]
     Indication: CONTRACEPTION

REACTIONS (1)
  - HAEMATOCHEZIA [None]
